FAERS Safety Report 7380243-8 (Version None)
Quarter: 2011Q1

REPORT INFORMATION
  Report Type: 
  Country: None (occurrence: None)
  Receive Date: 20110329
  Receipt Date: 20110325
  Transmission Date: 20110831
  Serious: Yes (Other)
  Sender: FDA-Public Use
  Company Number: DE-SANOFI-AVENTIS-2011SA018128

PATIENT

DRUGS (1)
  1. ARAVA [Suspect]
     Route: 048

REACTIONS (1)
  - ENCEPHALOPATHY [None]
